FAERS Safety Report 10408036 (Version 1)
Quarter: 2014Q3

REPORT INFORMATION
  Report Type: Spontaneous
  Country: US (occurrence: US)
  Receive Date: 20140825
  Receipt Date: 20140825
  Transmission Date: 20150326
  Serious: No
  Sender: FDA-Public Use
  Company Number: US-TEVA-502163USA

PATIENT
  Age: 54 Year
  Sex: Female
  Weight: 47.22 kg

DRUGS (1)
  1. ENJUVIA [Suspect]
     Active Substance: ESTROGENS, CONJUGATED SYNTHETIC B
     Indication: MENOPAUSAL SYMPTOMS
     Dates: start: 2011, end: 2011

REACTIONS (4)
  - Peripheral swelling [Recovered/Resolved]
  - Abdominal distension [Recovered/Resolved]
  - Crying [Recovered/Resolved]
  - Breast tenderness [Recovered/Resolved]

NARRATIVE: CASE EVENT DATE: 2011
